FAERS Safety Report 18763819 (Version 1)
Quarter: 2021Q1

REPORT INFORMATION
  Report Type: Spontaneous
  Country: CA (occurrence: CA)
  Receive Date: 20210120
  Receipt Date: 20210120
  Transmission Date: 20210419
  Serious: Yes (Death)
  Sender: FDA-Public Use
  Company Number: CA-ACCORD-214347

PATIENT
  Age: 61 Year
  Sex: Male
  Weight: 75 kg

DRUGS (5)
  1. ANTIMONY POTASSIUM TARTRATE/PAPAVER SOMNIFERUM TINCTURE/TERPIN HYDRATE [Concomitant]
  2. CODEINE PHOSPHATE/PARACETAMOL [Concomitant]
     Active Substance: ACETAMINOPHEN\CODEINE PHOSPHATE
  3. ETOPOSIDE. [Suspect]
     Active Substance: ETOPOSIDE
     Indication: PRODUCT USED FOR UNKNOWN INDICATION
     Dosage: NOT SPECIFIED
  4. CARBOPLATIN. [Suspect]
     Active Substance: CARBOPLATIN
     Indication: PRODUCT USED FOR UNKNOWN INDICATION
     Dosage: SOLUTION INTRAVENOUS
     Route: 042
  5. ESOMEPRAZOLE/ESOMEPRAZOLE MAGNESIUM/ESOMEPRAZOLE SODIUM [Concomitant]
     Active Substance: ESOMEPRAZOLE
     Dosage: NOT SPECIFIED

REACTIONS (3)
  - Hypotension [Fatal]
  - Hypothermia [Fatal]
  - Gastrointestinal haemorrhage [Fatal]
